FAERS Safety Report 18621068 (Version 10)
Quarter: 2025Q2

REPORT INFORMATION
  Report Type: Report from Study
  Country: CA (occurrence: CA)
  Receive Date: 20201216
  Receipt Date: 20250502
  Transmission Date: 20250717
  Serious: Yes (Other)
  Sender: TAKEDA
  Company Number: CA-TAKEDA-2020TUS057181

PATIENT
  Sex: Female

DRUGS (14)
  1. VEDOLIZUMAB [Suspect]
     Active Substance: VEDOLIZUMAB
     Indication: Crohn^s disease
  2. VEDOLIZUMAB [Suspect]
     Active Substance: VEDOLIZUMAB
     Dosage: 300 MILLIGRAM, Q4WEEKS
     Dates: start: 20201210
  3. VEDOLIZUMAB [Suspect]
     Active Substance: VEDOLIZUMAB
  4. VEDOLIZUMAB [Suspect]
     Active Substance: VEDOLIZUMAB
  5. VEDOLIZUMAB [Suspect]
     Active Substance: VEDOLIZUMAB
  6. VEDOLIZUMAB [Suspect]
     Active Substance: VEDOLIZUMAB
  7. Cortiment [Concomitant]
  8. PREDNISONE [Concomitant]
     Active Substance: PREDNISONE
  9. REMICADE [Concomitant]
     Active Substance: INFLIXIMAB
  10. PAROXETINE [Concomitant]
     Active Substance: PAROXETINE
  11. NASONEX [Concomitant]
     Active Substance: MOMETASONE FUROATE
  12. BACTROBAN [Concomitant]
     Active Substance: MUPIROCIN CALCIUM
  13. INFLIXIMAB [Concomitant]
     Active Substance: INFLIXIMAB
  14. IRON [Concomitant]
     Active Substance: IRON

REACTIONS (11)
  - Crohn^s disease [Not Recovered/Not Resolved]
  - Vulvovaginal inflammation [Unknown]
  - Anxiety [Unknown]
  - Cellulitis [Unknown]
  - Diarrhoea [Unknown]
  - Nasal turbinate hypertrophy [Unknown]
  - Infection [Unknown]
  - Skin disorder [Unknown]
  - Influenza like illness [Recovering/Resolving]
  - Nasopharyngitis [Unknown]
  - Sinusitis [Unknown]
